FAERS Safety Report 5840735-7 (Version None)
Quarter: 2008Q3

REPORT INFORMATION
  Report Type: 
  Country: None (occurrence: None)
  Receive Date: 20080811
  Receipt Date: 20080801
  Transmission Date: 20090109
  Serious: No
  Sender: FDA-Public Use
  Company Number: US-PFIZER INC-2008021437

PATIENT
  Sex: Male
  Weight: 103.4 kg

DRUGS (13)
  1. CADUET [Suspect]
  2. CADUET [Suspect]
  3. POTASSIUM CHLORIDE [Concomitant]
  4. FUROSEMIDE [Concomitant]
  5. ACETYLSALICYLIC ACID SRT [Concomitant]
  6. CLOPIDOGREL [Concomitant]
  7. NITROGLYCERIN [Concomitant]
  8. TESTOSTERONE [Concomitant]
  9. AMLODIPINE [Concomitant]
  10. CRESTOR [Concomitant]
  11. ISOSORBIDE MONONITRATE [Concomitant]
  12. TOPROL-XL [Concomitant]
  13. TAGAMET [Concomitant]

REACTIONS (1)
  - NO ADVERSE EVENT [None]
